FAERS Safety Report 20578190 (Version 1)
Quarter: 2022Q1

REPORT INFORMATION
  Report Type: Spontaneous
  Country: US (occurrence: US)
  Receive Date: 20220310
  Receipt Date: 20220310
  Transmission Date: 20220424
  Serious: No
  Sender: FDA-Public Use
  Company Number: US-JNJFOC-20220302971

PATIENT
  Age: 23 Year
  Sex: Female
  Weight: 61.290 kg

DRUGS (1)
  1. XARELTO [Suspect]
     Active Substance: RIVAROXABAN
     Indication: Superficial vein thrombosis
     Route: 048
     Dates: start: 20220120

REACTIONS (2)
  - Off label use [Unknown]
  - Product use in unapproved indication [Unknown]

NARRATIVE: CASE EVENT DATE: 20220120
